FAERS Safety Report 7554564-X (Version None)
Quarter: 2011Q2

REPORT INFORMATION
  Report Type: 
  Country: None (occurrence: None)
  Receive Date: 20110614
  Receipt Date: 20110614
  Transmission Date: 20111010
  Serious: No
  Sender: FDA-Public Use
  Company Number: None

PATIENT
  Sex: Female

DRUGS (2)
  1. ISTALOL [Suspect]
     Indication: GLAUCOMA
     Dosage: 1 DROP QA TOPICALLY
     Dates: start: 20060120, end: 20060220
  2. TIMOLOL MALEATE [Suspect]
     Indication: GLAUCOMA
     Dosage: 1 DROP QD TOPICALLY
     Route: 061
     Dates: start: 20070503, end: 20080108

REACTIONS (1)
  - DRUG HYPERSENSITIVITY [None]
